FAERS Safety Report 24467018 (Version 4)
Quarter: 2025Q3

REPORT INFORMATION
  Report Type: Spontaneous
  Country: US (occurrence: US)
  Receive Date: 20241018
  Receipt Date: 20250828
  Transmission Date: 20251021
  Serious: Yes (Hospitalization)
  Sender: ALEXION PHARMACEUTICALS
  Company Number: US-AstraZeneca-CH-00711385AP

PATIENT
  Age: 72 Year
  Sex: Female

DRUGS (1)
  1. BREZTRI [Suspect]
     Active Substance: BUDESONIDE\FORMOTEROL\GLYCOPYRROLATE

REACTIONS (12)
  - Dyspnoea [Unknown]
  - Heart rate increased [Unknown]
  - Oxygen saturation decreased [Unknown]
  - Product dose omission issue [Unknown]
  - Illness [Unknown]
  - Pharyngeal swelling [Unknown]
  - Device use issue [Unknown]
  - Wrong technique in product usage process [Unknown]
  - Drug hypersensitivity [Unknown]
  - Device delivery system issue [Unknown]
  - Device malfunction [Unknown]
  - Product use issue [Unknown]

NARRATIVE: CASE EVENT DATE: 20240925
